FAERS Safety Report 12626268 (Version 2)
Quarter: 2016Q3

REPORT INFORMATION
  Report Type: Spontaneous
  Country: CA (occurrence: CA)
  Receive Date: 20160805
  Receipt Date: 20160815
  Transmission Date: 20161109
  Serious: Yes (Death, Hospitalization, Other)
  Sender: FDA-Public Use
  Company Number: CA-UNITED THERAPEUTICS-UNT-2016-011264

PATIENT
  Age: 71 Year
  Sex: Male

DRUGS (1)
  1. REMODULIN [Suspect]
     Active Substance: TREPROSTINIL
     Indication: PULMONARY ARTERIAL HYPERTENSION
     Dosage: UNK, CONTINUING
     Route: 058
     Dates: start: 20131114

REACTIONS (16)
  - Condition aggravated [Unknown]
  - Vomiting [Unknown]
  - Blood creatinine increased [Unknown]
  - Pain in jaw [Not Recovered/Not Resolved]
  - Decreased appetite [Not Recovered/Not Resolved]
  - Infusion site pustule [Not Recovered/Not Resolved]
  - Dyspnoea [Not Recovered/Not Resolved]
  - Drug dose omission [Unknown]
  - Infusion site rash [Recovering/Resolving]
  - Infusion site cellulitis [Not Recovered/Not Resolved]
  - Hypoxia [Fatal]
  - Hepatic enzyme increased [Unknown]
  - Infusion site infection [Recovering/Resolving]
  - Infusion site erythema [Not Recovered/Not Resolved]
  - Infusion site discomfort [Not Recovered/Not Resolved]
  - Dyspnoea exertional [Not Recovered/Not Resolved]

NARRATIVE: CASE EVENT DATE: 2016
